FAERS Safety Report 23193832 (Version 3)
Quarter: 2023Q4

REPORT INFORMATION
  Report Type: Spontaneous
  Country: BR (occurrence: BR)
  Receive Date: 20231116
  Receipt Date: 20231123
  Transmission Date: 20240109
  Serious: Yes (Hospitalization)
  Sender: FDA-Public Use
  Company Number: BR-ELI_LILLY_AND_COMPANY-BR202311004791

PATIENT
  Sex: Male
  Weight: 75 kg

DRUGS (2)
  1. BASAGLAR [Suspect]
     Active Substance: INSULIN GLARGINE
     Indication: Type 1 diabetes mellitus
     Dosage: 33 INTERNATIONAL UNITS, DAILY IN THE MORNING
     Route: 065
  2. NOVORAPID [Concomitant]
     Active Substance: INSULIN ASPART
     Indication: Product used for unknown indication

REACTIONS (4)
  - Coronary artery disease [Recovered/Resolved]
  - Diarrhoea [Unknown]
  - Pollakiuria [Unknown]
  - Blood glucose increased [Unknown]
